FAERS Safety Report 16294133 (Version 1)
Quarter: 2019Q2

REPORT INFORMATION
  Report Type: Spontaneous
  Country: US (occurrence: US)
  Receive Date: 20190509
  Receipt Date: 20190509
  Transmission Date: 20190711
  Serious: No
  Sender: FDA-Public Use
  Company Number: US-ROCHE-2152653

PATIENT
  Sex: Male

DRUGS (1)
  1. ESBRIET [Suspect]
     Active Substance: PIRFENIDONE
     Indication: IDIOPATHIC PULMONARY FIBROSIS
     Dosage: TOOK 2 PILLS IN THE MORNING, 2 PILLS IN THE MID DAY AND 2 PILLS IN THE EVENING
     Route: 048

REACTIONS (2)
  - Treatment noncompliance [Unknown]
  - Decreased appetite [Unknown]
